FAERS Safety Report 8598624-3 (Version None)
Quarter: 2012Q3

REPORT INFORMATION
  Report Type: 
  Country: None (occurrence: None)
  Receive Date: 20120816
  Receipt Date: 19901105
  Transmission Date: 20120928
  Serious: Yes (Other)
  Sender: FDA-Public Use
  Company Number: US-ROCHE-1100488

PATIENT
  Age: 61 Year
  Sex: Female

DRUGS (1)
  1. ACTIVASE [Suspect]
     Indication: CHEST PAIN

REACTIONS (4)
  - CARDIAC ENZYMES INCREASED [None]
  - PERICARDITIS [None]
  - ELECTROCARDIOGRAM ST SEGMENT ELEVATION [None]
  - CHEST DISCOMFORT [None]
